FAERS Safety Report 7648951-9 (Version None)
Quarter: 2011Q3

REPORT INFORMATION
  Report Type: 
  Country: None (occurrence: None)
  Receive Date: 20110802
  Receipt Date: 20110727
  Transmission Date: 20111222
  Serious: Yes (Other)
  Sender: FDA-Public Use
  Company Number: IL-AMGEN-ISRSP2011038307

PATIENT
  Age: 62 Year
  Sex: Female

DRUGS (3)
  1. SULFASALAZINE [Concomitant]
     Dosage: UNK
  2. ENBREL [Suspect]
     Indication: RHEUMATOID ARTHRITIS
     Dosage: 50 MG, WEEKLY PFS
     Dates: start: 20110509
  3. MTX                                /00113801/ [Concomitant]
     Dosage: UNK

REACTIONS (1)
  - IRIDOCYCLITIS [None]
